FAERS Safety Report 17171532 (Version 1)
Quarter: 2019Q4

REPORT INFORMATION
  Report Type: Spontaneous
  Country: HU (occurrence: HU)
  Receive Date: 20191218
  Receipt Date: 20191218
  Transmission Date: 20200122
  Serious: Yes (Disabling, Other)
  Sender: FDA-Public Use
  Company Number: NVSC2019HU071461

PATIENT
  Age: 48 Year
  Sex: Male
  Weight: 104 kg

DRUGS (6)
  1. GENTAMICIN. [Suspect]
     Active Substance: GENTAMICIN
     Indication: PROSTATITIS
     Dosage: UNK
     Route: 065
     Dates: start: 201909
  2. AUGMENTIN DUO [Concomitant]
     Active Substance: AMOXICILLIN\CLAVULANATE POTASSIUM
     Indication: PRODUCT USED FOR UNKNOWN INDICATION
     Dosage: 2 DF, QD
     Route: 065
  3. LEVOFLOXACIN SANDOZ [Suspect]
     Active Substance: LEVOFLOXACIN
     Dosage: 500 MG, QD
     Route: 048
     Dates: start: 20191030, end: 20191118
  4. TAVANIC [Concomitant]
     Active Substance: LEVOFLOXACIN
     Indication: PROSTATITIS
     Dosage: 500 MG
     Route: 065
     Dates: start: 201906
  5. CRANBERRY. [Concomitant]
     Active Substance: CRANBERRY
     Indication: PRODUCT USED FOR UNKNOWN INDICATION
     Route: 065
  6. LEVOFLOXACIN SANDOZ [Suspect]
     Active Substance: LEVOFLOXACIN
     Indication: PROSTATITIS
     Dosage: 500 MG, QD
     Route: 048
     Dates: start: 20191030

REACTIONS (11)
  - Arthralgia [Not Recovered/Not Resolved]
  - Gait disturbance [Not Recovered/Not Resolved]
  - Asthenia [Recovering/Resolving]
  - Depressive symptom [Unknown]
  - Arthropathy [Unknown]
  - Pain [Unknown]
  - Joint noise [Not Recovered/Not Resolved]
  - Condition aggravated [Unknown]
  - Pain in extremity [Recovering/Resolving]
  - Depression [Unknown]
  - Headache [Recovering/Resolving]

NARRATIVE: CASE EVENT DATE: 201911
